FAERS Safety Report 9887365 (Version 1)
Quarter: 2014Q1

REPORT INFORMATION
  Report Type: Other
  Country: GT (occurrence: GT)
  Receive Date: 20140211
  Receipt Date: 20140211
  Transmission Date: 20141002
  Serious: Yes (Other)
  Sender: FDA-Public Use
  Company Number: GT-BRISTOL-MYERS SQUIBB COMPANY-20161584

PATIENT
  Sex: 0

DRUGS (1)
  1. METFORMIN HCL [Suspect]
     Route: 064

REACTIONS (2)
  - Foetal distress syndrome [Unknown]
  - Foetal growth restriction [Unknown]
